FAERS Safety Report 14703545 (Version 3)
Quarter: 2018Q2

REPORT INFORMATION
  Report Type: Spontaneous
  Country: US (occurrence: US)
  Receive Date: 20180402
  Receipt Date: 20180420
  Transmission Date: 20180711
  Serious: Yes (Hospitalization, Other)
  Sender: FDA-Public Use
  Company Number: US-009507513-1803USA011680

PATIENT
  Age: 66 Year
  Sex: Female

DRUGS (2)
  1. NOXAFIL [Suspect]
     Active Substance: POSACONAZOLE
     Indication: LUNG INFECTION
     Dosage: 300 MG, BID
     Route: 048
     Dates: start: 20180312, end: 20180327
  2. NOXAFIL [Suspect]
     Active Substance: POSACONAZOLE
     Indication: SCEDOSPORIUM INFECTION

REACTIONS (6)
  - Blood potassium decreased [Recovered/Resolved]
  - Liver function test increased [Unknown]
  - Hemianaesthesia [Recovered/Resolved]
  - Feeling abnormal [Unknown]
  - Adverse event [Unknown]
  - Adverse event [Not Recovered/Not Resolved]

NARRATIVE: CASE EVENT DATE: 2018
